FAERS Safety Report 24351505 (Version 1)
Quarter: 2024Q3

REPORT INFORMATION
  Report Type: Spontaneous
  Country: US (occurrence: None)
  Receive Date: 20240921
  Receipt Date: 20240921
  Transmission Date: 20241017
  Serious: Yes (Other)
  Sender: Public
  Company Number: None

PATIENT
  Age: 64 Year
  Sex: Male
  Weight: 78.75 kg

DRUGS (3)
  1. BUPRENORPHINE HYDROCHLORIDE AND NALOXONE HYDROCHLORIDE [Suspect]
     Active Substance: BUPRENORPHINE HYDROCHLORIDE\NALOXONE HYDROCHLORIDE
     Dosage: OTHER QUANTITY : 3 TABLET(S);?FREQUENCY : EVERY 8 HOURS;?
     Route: 048
  2. CELEBREX [Concomitant]
     Active Substance: CELECOXIB
  3. flexibile [Concomitant]

REACTIONS (6)
  - Adverse drug reaction [None]
  - Pain [None]
  - Joint swelling [None]
  - Peripheral swelling [None]
  - Peripheral swelling [None]
  - Arthritis infective [None]

NARRATIVE: CASE EVENT DATE: 20240319
